FAERS Safety Report 9503570 (Version 1)
Quarter: 2013Q1

REPORT INFORMATION
  Report Type: Spontaneous
  Country: US (occurrence: None)
  Receive Date: 20130130
  Receipt Date: 20130130
  Transmission Date: 20140127
  Serious: Yes (Other)
  Sender: FDA-Public Use
  Company Number: US2012100008145

PATIENT
  Age: 59 Year
  Sex: Female
  Weight: 118.8 kg

DRUGS (2)
  1. BYDUREON [Suspect]
     Indication: TYPE 2 DIABETES MELLITUS
     Route: 058
     Dates: start: 20120424, end: 201208
  2. METFORMIN (METFORMIN) [Concomitant]

REACTIONS (1)
  - Renal failure [None]
